FAERS Safety Report 14604707 (Version 1)
Quarter: 2018Q1

REPORT INFORMATION
  Report Type: Spontaneous
  Country: US (occurrence: US)
  Receive Date: 20180306
  Receipt Date: 20180306
  Transmission Date: 20180509
  Serious: No
  Sender: FDA-Public Use
  Company Number: None

PATIENT
  Age: 93 Year
  Sex: Male
  Weight: 83.46 kg

DRUGS (6)
  1. CASODEX [Concomitant]
     Active Substance: BICALUTAMIDE
  2. LUPRON [Concomitant]
     Active Substance: LEUPROLIDE ACETATE
  3. PREDNISONE. [Concomitant]
     Active Substance: PREDNISONE
  4. METFORMIN HCL [Concomitant]
     Active Substance: METFORMIN HYDROCHLORIDE
  5. ZYTIGA [Suspect]
     Active Substance: ABIRATERONE ACETATE
     Indication: PROSTATE CANCER
     Route: 048
     Dates: start: 20171012
  6. SIMVASTATIN. [Concomitant]
     Active Substance: SIMVASTATIN

REACTIONS (1)
  - Contusion [None]
